FAERS Safety Report 15084152 (Version 1)
Quarter: 2018Q2

REPORT INFORMATION
  Report Type: Spontaneous
  Country: GB (occurrence: GB)
  Receive Date: 20180628
  Receipt Date: 20180628
  Transmission Date: 20180711
  Serious: Yes (Other)
  Sender: FDA-Public Use
  Company Number: PHHY2018GB032206

PATIENT
  Age: 55 Year
  Sex: Female
  Weight: 79 kg

DRUGS (3)
  1. GLICLAZIDE [Concomitant]
     Active Substance: GLICLAZIDE
     Indication: PRODUCT USED FOR UNKNOWN INDICATION
     Dosage: 0.5 DF, QD IN THE MORNING.
     Route: 065
     Dates: start: 20160825
  2. PHENOXYMETHYLPENICILLIN (= PENICILLIN V) [Suspect]
     Active Substance: PENICILLIN V
     Indication: PRODUCT USED FOR UNKNOWN INDICATION
     Route: 065
  3. METFORMIN [Concomitant]
     Active Substance: METFORMIN HYDROCHLORIDE
     Indication: PRODUCT USED FOR UNKNOWN INDICATION
     Dosage: 6 DF, QD
     Route: 065
     Dates: start: 20160825

REACTIONS (1)
  - Rash macular [Recovered/Resolved]

NARRATIVE: CASE EVENT DATE: 20171122
